FAERS Safety Report 6417542-X (Version None)
Quarter: 2009Q4

REPORT INFORMATION
  Report Type: 
  Country: None (occurrence: None)
  Receive Date: 20091026
  Receipt Date: 20091014
  Transmission Date: 20100525
  Serious: Yes (Death, Hospitalization)
  Sender: FDA-Public Use
  Company Number: 2009-02352

PATIENT
  Age: 71 Year
  Sex: Male
  Weight: 62 kg

DRUGS (8)
  1. VELCADE [Suspect]
     Indication: MULTIPLE MYELOMA
     Dosage: 1.3 MG/M2,  INTRAVENOUS
     Route: 042
     Dates: start: 20090505, end: 20090508
  2. SULFAMETHOXAZOLE AND TRIMETHOPRIM [Concomitant]
  3. LANSOPRAZOLE [Concomitant]
  4. FENTANYL-100 [Concomitant]
  5. OXYCODONE HCL [Concomitant]
  6. ITRACONAZOLE [Concomitant]
  7. VEEN D (GLUCOSE, SODIUM CHLORIDE, CALCIUM CHLORIDE DIHYDRATE, POTASSIU [Concomitant]
  8. SOLU-CORTEF (HYDROCORTISONE SODIUM SUCCINATE)` [Concomitant]

REACTIONS (9)
  - BLOOD LACTATE DEHYDROGENASE INCREASED [None]
  - CARDIAC DISORDER [None]
  - IMMUNOSUPPRESSION [None]
  - LUNG INFILTRATION [None]
  - MALIGNANT NEOPLASM PROGRESSION [None]
  - MULTIPLE MYELOMA [None]
  - PLEURAL EFFUSION [None]
  - PNEUMONIA [None]
  - STAPHYLOCOCCAL SEPSIS [None]
